FAERS Safety Report 4333262-X (Version None)
Quarter: 2004Q2

REPORT INFORMATION
  Report Type: 
  Country: None (occurrence: None)
  Receive Date: 20040401
  Receipt Date: 20040326
  Transmission Date: 20050107
  Serious: Yes (Hospitalization)
  Sender: FDA-Public Use
  Company Number: 2004UW05955

PATIENT
  Age: 63 Year
  Sex: Male
  Weight: 70.3075 kg

DRUGS (10)
  1. IRESSA [Suspect]
     Indication: NON-SMALL CELL LUNG CANCER
     Dates: start: 20040318
  2. OLANZAPINE [Concomitant]
  3. ATIVAN [Concomitant]
  4. MS CONTIN [Concomitant]
  5. MS CONTIN [Concomitant]
  6. REGLAN [Concomitant]
  7. LISINOPRIL [Concomitant]
  8. VIOXX [Concomitant]
  9. NYSTATIN [Concomitant]
  10. SENECA C [Concomitant]

REACTIONS (5)
  - NAUSEA [None]
  - PAIN [None]
  - RESTLESS LEGS SYNDROME [None]
  - SOMNOLENCE [None]
  - VOMITING [None]
